FAERS Safety Report 8138026 (Version 2)
Quarter: 2013Q2

REPORT INFORMATION
  Report Type: Spontaneous
  Country: US (occurrence: US)
  Receive Date: 20110915
  Receipt Date: 20130403
  Transmission Date: 20140414
  Serious: Yes (Hospitalization, Other)
  Sender: FDA-Public Use
  Company Number: US-ASTRAZENECA-2011SE30830

PATIENT
  Age: 60 Year
  Sex: Female
  Weight: 81.6 kg

DRUGS (8)
  1. SEROQUEL [Suspect]
     Indication: BIPOLAR DISORDER
     Route: 048
  2. ESTRADIOL [Concomitant]
  3. CLONIDINE [Concomitant]
     Indication: BLOOD PRESSURE ABNORMAL
  4. DILTIAZEM [Concomitant]
     Indication: BLOOD PRESSURE ABNORMAL
  5. VALIUM [Concomitant]
  6. CLOPIDOGREL [Concomitant]
     Indication: THROMBOSIS
  7. PRIVASTATIN SODIUM [Concomitant]
     Indication: BLOOD CHOLESTEROL ABNORMAL
  8. ALLEVE [Concomitant]
     Indication: PAIN
     Dosage: AS REQUIRED

REACTIONS (11)
  - Cerebrovascular accident [Unknown]
  - Withdrawal syndrome [Unknown]
  - Chest pain [Unknown]
  - Chest discomfort [Unknown]
  - Transient ischaemic attack [Unknown]
  - Memory impairment [Unknown]
  - Anxiety [Unknown]
  - General physical health deterioration [Unknown]
  - Insomnia [Unknown]
  - Blood cholesterol increased [Unknown]
  - Drug dose omission [Unknown]
